FAERS Safety Report 8557397-0 (Version None)
Quarter: 2012Q3

REPORT INFORMATION
  Report Type: 
  Country: None (occurrence: None)
  Receive Date: 20120801
  Receipt Date: 20120723
  Transmission Date: 20120928
  Serious: Yes (Hospitalization)
  Sender: FDA-Public Use
  Company Number: FR-ASTRAZENECA-2012SE52115

PATIENT
  Age: 57 Year
  Sex: Male

DRUGS (12)
  1. DOBUTAMINE BASE [Concomitant]
  2. NEXIUM [Suspect]
     Route: 048
  3. GANCICLOVIR SODIUM [Suspect]
     Indication: PNEUMONIA CYTOMEGALOVIRAL
     Dates: end: 20120419
  4. MIDAZOLAM HCL [Concomitant]
  5. FLUCONAZOLE [Concomitant]
  6. NOREPINEPHRINE BITARTRATE [Concomitant]
  7. ADRENALIN IN OIL INJ [Concomitant]
  8. OFLOXACIN [Suspect]
     Indication: ENDOCARDITIS
     Route: 048
     Dates: start: 20120101
  9. FOSFOMYCINE [Concomitant]
  10. FLAGYL [Concomitant]
  11. SUFENTANIL CITRATE [Concomitant]
  12. CLAFORAN [Concomitant]

REACTIONS (1)
  - BICYTOPENIA [None]
